FAERS Safety Report 7765735-1 (Version None)
Quarter: 2011Q3

REPORT INFORMATION
  Report Type: 
  Country: None (occurrence: None)
  Receive Date: 20110921
  Receipt Date: 20110407
  Transmission Date: 20111222
  Serious: No
  Sender: FDA-Public Use
  Company Number: US-BAYER-2011-032347

PATIENT
  Age: 34 Year
  Sex: Female

DRUGS (2)
  1. ALEVE (CAPLET) [Suspect]
     Indication: ANALGESIC THERAPY
     Dosage: 2 TABS
     Route: 048
  2. ASPIRIN [Concomitant]
     Dosage: UNK

REACTIONS (2)
  - SENSATION OF HEAVINESS [None]
  - ANXIETY [None]
